FAERS Safety Report 19709217 (Version 1)
Quarter: 2021Q3

REPORT INFORMATION
  Report Type: Spontaneous
  Country: IN (occurrence: IN)
  Receive Date: 20210817
  Receipt Date: 20210817
  Transmission Date: 20211014
  Serious: Yes (Other)
  Sender: FDA-Public Use
  Company Number: IN-PFIZER INC-202101008061

PATIENT
  Age: 40 Year
  Sex: Male

DRUGS (1)
  1. METHYLPREDNISOLONE. [Suspect]
     Active Substance: METHYLPREDNISOLONE
     Indication: PYREXIA
     Dosage: 16 MG, 2X/DAY
     Route: 048

REACTIONS (24)
  - Sinus polyp [Unknown]
  - Mucormycosis [Unknown]
  - Vision blurred [Unknown]
  - Palatal ulcer [Unknown]
  - Exophthalmos [Unknown]
  - Eye swelling [Unknown]
  - Periorbital inflammation [Unknown]
  - Purulent discharge [Unknown]
  - Ophthalmoplegia [Unknown]
  - Schizophrenia [Unknown]
  - Ocular hyperaemia [Unknown]
  - COVID-19 [Unknown]
  - Osteitis [Unknown]
  - Sinusitis fungal [Unknown]
  - Blood creatinine increased [Unknown]
  - Periorbital oedema [Unknown]
  - Paranasal sinus hypersecretion [Unknown]
  - Diarrhoea [Unknown]
  - Rhinocerebral mucormycosis [Unknown]
  - Metastases to nervous system [Unknown]
  - Blood bicarbonate decreased [Unknown]
  - Acute sinusitis [Unknown]
  - Sinusitis [Unknown]
  - Alkalosis [Unknown]

NARRATIVE: CASE EVENT DATE: 20210526
